FAERS Safety Report 18012972 (Version 1)
Quarter: 2020Q3

REPORT INFORMATION
  Report Type: Spontaneous
  Country: US (occurrence: US)
  Receive Date: 20200710
  Receipt Date: 20200710
  Transmission Date: 20201103
  Serious: No
  Sender: FDA-Public Use
  Company Number: None

PATIENT
  Age: 74 Year
  Sex: Female

DRUGS (1)
  1. VERZENIO [Suspect]
     Active Substance: ABEMACICLIB
     Route: 048
     Dates: start: 20200625, end: 20200701

REACTIONS (3)
  - Diarrhoea [None]
  - Dehydration [None]
  - Vomiting [None]

NARRATIVE: CASE EVENT DATE: 20200625
